FAERS Safety Report 15449947 (Version 3)
Quarter: 2023Q2

REPORT INFORMATION
  Report Type: Spontaneous
  Country: FR (occurrence: FR)
  Receive Date: 20181001
  Receipt Date: 20230627
  Transmission Date: 20230722
  Serious: Yes (Other)
  Sender: FDA-Public Use
  Company Number: FR-EMA-DD-20180910-KUMARNVEVHP-121514

PATIENT
  Age: 58 Year
  Sex: Female

DRUGS (8)
  1. IMATINIB [Suspect]
     Active Substance: IMATINIB
     Indication: Chronic myeloid leukaemia
     Dosage: 400 MG,QD
     Route: 065
     Dates: start: 200102
  2. IMATINIB [Suspect]
     Active Substance: IMATINIB
     Dosage: 100 MG
     Route: 065
  3. IMATINIB [Suspect]
     Active Substance: IMATINIB
     Dosage: 250 MG,UNK
     Route: 065
  4. ROXITHROMYCIN [Suspect]
     Active Substance: ROXITHROMYCIN
     Indication: Upper respiratory tract infection
     Dosage: 300 MG, QD
     Route: 048
  5. ROXITHROMYCIN [Suspect]
     Active Substance: ROXITHROMYCIN
     Indication: Upper respiratory tract infection
  6. IMATINIB MESYLATE [Suspect]
     Active Substance: IMATINIB MESYLATE
     Indication: Chronic myeloid leukaemia
     Dosage: 250 MG,UNK
     Route: 065
  7. IMATINIB MESYLATE [Suspect]
     Active Substance: IMATINIB MESYLATE
     Dosage: 100 MG
     Route: 065
  8. IMATINIB MESYLATE [Suspect]
     Active Substance: IMATINIB MESYLATE
     Dosage: 400 MG,QD
     Route: 065
     Dates: start: 200102

REACTIONS (7)
  - Jaundice [Recovering/Resolving]
  - Haematotoxicity [Unknown]
  - Upper respiratory tract infection [Unknown]
  - Asthenia [Recovering/Resolving]
  - Cholestasis [Recovering/Resolving]
  - Hepatic function abnormal [Recovering/Resolving]
  - Hepatitis [Recovering/Resolving]

NARRATIVE: CASE EVENT DATE: 20020101
